FAERS Safety Report 7117363-9 (Version None)
Quarter: 2010Q4

REPORT INFORMATION
  Report Type: 
  Country: None (occurrence: None)
  Receive Date: 20101122
  Receipt Date: 20101111
  Transmission Date: 20110411
  Serious: Yes (Hospitalization)
  Sender: FDA-Public Use
  Company Number: CA-ROCHE-725096

PATIENT
  Sex: Male

DRUGS (4)
  1. AVASTIN [Suspect]
     Route: 042
     Dates: start: 20100630, end: 20100901
  2. FLUOROURACIL [Concomitant]
     Route: 042
     Dates: start: 20100330, end: 20100901
  3. FOLINIC ACID [Concomitant]
     Route: 042
     Dates: start: 20100330, end: 20100901
  4. IRINOTECAN HCL [Concomitant]
     Route: 042
     Dates: start: 20100330, end: 20100901

REACTIONS (3)
  - PULMONARY EMBOLISM [None]
  - RENAL FAILURE ACUTE [None]
  - SEPTIC SHOCK [None]
